FAERS Safety Report 6133099-5 (Version None)
Quarter: 2009Q1

REPORT INFORMATION
  Report Type: 
  Country: None (occurrence: None)
  Receive Date: 20090326
  Receipt Date: 20090319
  Transmission Date: 20090719
  Serious: Yes (Hospitalization)
  Sender: FDA-Public Use
  Company Number: US-BIOGENIDEC-2009BI003376

PATIENT
  Age: 37 Year
  Sex: Female
  Weight: 53 kg

DRUGS (6)
  1. TYSABRI [Suspect]
     Indication: MULTIPLE SCLEROSIS
     Route: 042
     Dates: start: 20090119
  2. GABAPENTIN [Concomitant]
     Indication: EPILEPSY
  3. TEGRETOL [Concomitant]
     Indication: EPILEPSY
  4. OXYGEN [Concomitant]
     Indication: CHRONIC OBSTRUCTIVE PULMONARY DISEASE
  5. NEBULIZER (NOS) [Concomitant]
     Indication: CHRONIC OBSTRUCTIVE PULMONARY DISEASE
     Route: 055
  6. INHALER (NOS) [Concomitant]
     Indication: CHRONIC OBSTRUCTIVE PULMONARY DISEASE
     Route: 055

REACTIONS (9)
  - CONVERSION DISORDER [None]
  - CRYING [None]
  - HEADACHE [None]
  - HEART RATE DECREASED [None]
  - HYPOTENSION [None]
  - MEMORY IMPAIRMENT [None]
  - MULTIPLE SCLEROSIS RELAPSE [None]
  - MUSCLE SPASMS [None]
  - TREMOR [None]
